FAERS Safety Report 10360254 (Version 1)
Quarter: 2014Q3

REPORT INFORMATION
  Report Type: Spontaneous
  Country: CN (occurrence: CN)
  Receive Date: 20140804
  Receipt Date: 20140804
  Transmission Date: 20150326
  Serious: Yes (Death, Other)
  Sender: FDA-Public Use
  Company Number: PHHY2014CN093898

PATIENT
  Age: 29 Year
  Sex: Male

DRUGS (7)
  1. TACROLIMUS. [Interacting]
     Active Substance: TACROLIMUS
     Dosage: 0.5 MG, Q12H
  2. CAPECITABINE [Suspect]
     Active Substance: CAPECITABINE
  3. MYCOPHENOLIC ACID [Concomitant]
     Active Substance: MYCOPHENOLIC ACID
     Indication: IMMUNOSUPPRESSION
  4. PREDNISONE. [Concomitant]
     Active Substance: PREDNISONE
     Indication: IMMUNOSUPPRESSION
  5. TACROLIMUS. [Interacting]
     Active Substance: TACROLIMUS
     Indication: IMMUNOSUPPRESSION
     Dosage: 1 MG, Q12H
  6. VITAMIN K1 [Suspect]
     Active Substance: PHYTONADIONE
     Indication: COAGULOPATHY
  7. WARFARIN [Interacting]
     Active Substance: WARFARIN
     Dates: end: 20130328

REACTIONS (5)
  - Hepatic encephalopathy [Unknown]
  - Drug interaction [Unknown]
  - Liver injury [Unknown]
  - Death [Fatal]
  - Rash [Recovered/Resolved]
